FAERS Safety Report 9178296 (Version 1)
Quarter: 2012Q4

REPORT INFORMATION
  Report Type: 
  Country: BR (occurrence: BR)
  Receive Date: 20121029
  Receipt Date: 20121029
  Transmission Date: 20130627
  Serious: Yes (Other)
  Sender: FDA-Public Use
  Company Number: BR-ROCHE-1146652

PATIENT
  Age: 67 Year
  Sex: Female
  Weight: 53 kg

DRUGS (10)
  1. MABTHERA [Suspect]
     Indication: RHEUMATOID ARTHRITIS
     Route: 065
  2. ENBREL [Suspect]
     Indication: RHEUMATOID ARTHRITIS
     Route: 058
     Dates: start: 20091114, end: 201112
  3. ENBREL [Suspect]
     Route: 058
     Dates: start: 201109, end: 201111
  4. PARACETAMOL [Concomitant]
  5. PREDNISONE [Concomitant]
  6. VYTORIN [Concomitant]
  7. INSULIN [Concomitant]
  8. DIAMICRON [Concomitant]
  9. VYTORIN [Concomitant]
  10. LOSARTAN [Concomitant]
     Indication: HYPERTENSION

REACTIONS (3)
  - Coronary artery insufficiency [Unknown]
  - Immunodeficiency [Unknown]
  - Drug ineffective [Unknown]
